FAERS Safety Report 6077282-6 (Version None)
Quarter: 2009Q1

REPORT INFORMATION
  Report Type: 
  Country: None (occurrence: None)
  Receive Date: 20090213
  Receipt Date: 20090209
  Transmission Date: 20090719
  Serious: Yes (Other)
  Sender: FDA-Public Use
  Company Number: A0767462A

PATIENT
  Age: 79 Year
  Sex: Male

DRUGS (4)
  1. REQUIP XL [Suspect]
     Indication: PARKINSON'S DISEASE
     Dosage: 2MG PER DAY
     Route: 048
     Dates: start: 20081001, end: 20090101
  2. REQUIP [Suspect]
     Indication: PARKINSON'S DISEASE
     Dosage: 1MG THREE TIMES PER DAY
     Route: 048
     Dates: start: 20090101
  3. AGGRENOX [Concomitant]
  4. LISINOPRIL [Concomitant]

REACTIONS (6)
  - BLADDER DISORDER [None]
  - BLOOD URINE PRESENT [None]
  - FATIGUE [None]
  - PENILE PAIN [None]
  - TRANSIENT ISCHAEMIC ATTACK [None]
  - URINARY TRACT DISORDER [None]
